FAERS Safety Report 6535620-1 (Version None)
Quarter: 2010Q1

REPORT INFORMATION
  Report Type: 
  Country: None (occurrence: None)
  Receive Date: 20100113
  Receipt Date: 20100107
  Transmission Date: 20100710
  Serious: No
  Sender: FDA-Public Use
  Company Number: PHHY2010DE01482

PATIENT

DRUGS (1)
  1. LAMISIL [Suspect]
     Dosage: UNK
     Route: 061

REACTIONS (2)
  - DRUG ADMINISTRATION ERROR [None]
  - SKIN IRRITATION [None]
